FAERS Safety Report 4621194-9 (Version None)
Quarter: 2005Q1

REPORT INFORMATION
  Report Type: 
  Country: None (occurrence: None)
  Receive Date: 20050328
  Receipt Date: 20050318
  Transmission Date: 20050727
  Serious: Yes (Other)
  Sender: FDA-Public Use
  Company Number: 2005-03-1366

PATIENT
  Age: 8 Year
  Sex: Female

DRUGS (2)
  1. GARAMYCIN [Suspect]
     Indication: CONJUNCTIVITIS
     Dosage: 2 GTT OU QID OPHTHALMIC
     Route: 047
     Dates: start: 20500315, end: 20050316
  2. FLOVENT [Concomitant]

REACTIONS (3)
  - EYE IRRITATION [None]
  - OCULAR HYPERAEMIA [None]
  - PHOTOPHOBIA [None]
